FAERS Safety Report 9702094 (Version 1)
Quarter: 2013Q4

REPORT INFORMATION
  Report Type: Spontaneous
  Country: FR (occurrence: FR)
  Receive Date: 20131121
  Receipt Date: 20131121
  Transmission Date: 20140711
  Serious: Yes (Hospitalization)
  Sender: FDA-Public Use
  Company Number: FR-PFIZER INC-2013331072

PATIENT
  Age: 66 Year
  Sex: Male

DRUGS (2)
  1. CORDARONE [Suspect]
     Indication: TACHYCARDIA
     Dosage: 200 MG, 1X/DAY
     Route: 048
     Dates: start: 20130806
  2. NEXAVAR [Concomitant]
     Dosage: UNK
     Dates: start: 201303

REACTIONS (1)
  - Diarrhoea [Recovered/Resolved]
